FAERS Safety Report 22824212 (Version 10)
Quarter: 2024Q2

REPORT INFORMATION
  Report Type: Spontaneous
  Country: NL (occurrence: NL)
  Receive Date: 20230815
  Receipt Date: 20240404
  Transmission Date: 20240716
  Serious: Yes (Death, Life-Threatening, Hospitalization, Other)
  Sender: FDA-Public Use
  Company Number: NL-MLMSERVICE-20230727-4439527-1

PATIENT
  Age: 55 Year
  Sex: Female
  Weight: 125 kg

DRUGS (21)
  1. METFORMIN HYDROCHLORIDE [Interacting]
     Active Substance: METFORMIN HYDROCHLORIDE
     Indication: Product used for unknown indication
     Dosage: 165 DOSAGE FORM(1 TOTAL)(82.5 G, OR 660 MG/KG)
     Route: 048
  2. METFORMIN HYDROCHLORIDE [Interacting]
     Active Substance: METFORMIN HYDROCHLORIDE
     Dosage: (82.5 G, OR 660 MG/KG)
     Route: 048
  3. METFORMIN HYDROCHLORIDE [Interacting]
     Active Substance: METFORMIN HYDROCHLORIDE
     Dosage: 165 DOSAGE FORM
     Route: 042
  4. SIMVASTATIN [Interacting]
     Active Substance: SIMVASTATIN
     Indication: Product used for unknown indication
     Dosage: 38 DOSAGE FORM(1 TOTAL)
     Route: 048
  5. SIMVASTATIN [Interacting]
     Active Substance: SIMVASTATIN
     Dosage: 40 MILLIGRAM,(1520 MG, OR 12 MG/KG)
     Route: 048
  6. RYBELSUS [Suspect]
     Active Substance: SEMAGLUTIDE
     Indication: Product used for unknown indication
     Dosage: 30 DOSAGE FORM 14 MG (420 MG OR 3.4 MG/ KG)
     Route: 048
  7. RYBELSUS [Suspect]
     Active Substance: SEMAGLUTIDE
     Dosage: 30 DOSAGE FORM,(30 TABLETS (420 MG OR 3.4 MG/ KG))
     Route: 048
  8. ACETAMINOPHEN [Interacting]
     Active Substance: ACETAMINOPHEN
     Indication: Product used for unknown indication
     Dosage: 20 DOSAGE FORM (20 TABLETS OF ACETAMINOPHEN 500 MG (10 G, OR 80 MG/KG))
     Route: 048
  9. ACETAMINOPHEN [Interacting]
     Active Substance: ACETAMINOPHEN
     Dosage: (10 G, OR 80 MG/KG)
     Route: 048
  10. ACETAMINOPHEN [Interacting]
     Active Substance: ACETAMINOPHEN
     Dosage: 20 DOSAGE FORM (20 TABLETS OF ACETAMINOPHEN 500 MG (10 G, OR 80 MG/KG))
     Route: 042
  11. SEMAGLUTIDE [Interacting]
     Active Substance: SEMAGLUTIDE
     Indication: Product used for unknown indication
     Dosage: 30 DOSAGE FORM, 420 MG OR 3,4 MG/KG
     Route: 048
  12. SEMAGLUTIDE [Interacting]
     Active Substance: SEMAGLUTIDE
     Dosage: 30 DOSAGE FORM, 420 MG OR 3,4 MG/KG
     Route: 042
  13. SEMAGLUTIDE [Interacting]
     Active Substance: SEMAGLUTIDE
     Dosage: 30 DOSAGE FORM, 420 MG OR 3,4 MG/KG
     Route: 065
  14. METHYLENE BLUE [Suspect]
     Active Substance: METHYLENE BLUE
     Indication: Vasoplegia syndrome
     Dosage: 2 MILLIGRAM/KILOGRAM,6 HOURS AFTER FIRST ONE
     Route: 042
  15. METHYLENE BLUE [Suspect]
     Active Substance: METHYLENE BLUE
     Dosage: 250 MILLIGRAM, (2 MG/KG)
     Route: 042
  16. VASOPRESSIN [Concomitant]
     Active Substance: VASOPRESSIN
     Indication: Vasoplegia syndrome
     Dosage: UNK, 0.03 IE/MIN
     Route: 065
  17. HYDROCORTISONE [Concomitant]
     Active Substance: HYDROCORTISONE
     Indication: Vasoplegia syndrome
     Dosage: UNK
     Route: 065
  18. ACTIVATED CHARCOAL [Concomitant]
     Active Substance: ACTIVATED CHARCOAL
     Indication: Product used for unknown indication
     Dosage: UNK
     Route: 065
  19. NOREPINEPHRINE\NOREPINEPHRINE BITARTRATE [Concomitant]
     Active Substance: NOREPINEPHRINE\NOREPINEPHRINE BITARTRATE
     Indication: Vasoplegia syndrome
     Dosage: UNK,0 TO 1.2 ?G/KG/MIN (INCREASING RAPIDELY)
     Route: 065
  20. NOREPINEPHRINE\NOREPINEPHRINE BITARTRATE [Concomitant]
     Active Substance: NOREPINEPHRINE\NOREPINEPHRINE BITARTRATE
     Dosage: UNK,0.5 ?G/KG/MIN (15 MIN AFTER METHYLEN BLUE FIRST INJECTION) FOR 6 H
     Route: 065
  21. NOREPINEPHRINE\NOREPINEPHRINE BITARTRATE [Concomitant]
     Active Substance: NOREPINEPHRINE\NOREPINEPHRINE BITARTRATE
     Dosage: UNK,0.25 ?G/KG/MIN. AFTER SECOND BOLUS OF METHYLENE BLUE 2 MG/KG
     Route: 065

REACTIONS (15)
  - Distributive shock [Fatal]
  - Hepatic necrosis [Fatal]
  - Lactic acidosis [Fatal]
  - Intentional overdose [Fatal]
  - Suicide attempt [Fatal]
  - Completed suicide [Fatal]
  - Toxicity to various agents [Fatal]
  - Hypoglycaemia [Recovering/Resolving]
  - Hepatic ischaemia [Unknown]
  - Drug interaction [Unknown]
  - Drug abuse [Unknown]
  - Faeces discoloured [Unknown]
  - Condition aggravated [Unknown]
  - Chromaturia [Unknown]
  - Skin discolouration [Unknown]
